FAERS Safety Report 20361490 (Version 1)
Quarter: 2022Q1

REPORT INFORMATION
  Report Type: Spontaneous
  Country: JP (occurrence: JP)
  Receive Date: 20220121
  Receipt Date: 20220121
  Transmission Date: 20220423
  Serious: Yes (Death, Other)
  Sender: FDA-Public Use
  Company Number: JP-OTSUKA-2022_000758

PATIENT
  Age: 95 Year

DRUGS (1)
  1. SAMSCA [Suspect]
     Active Substance: TOLVAPTAN
     Indication: Cardiac failure
     Dosage: 3.75 MG, UNK
     Route: 048

REACTIONS (2)
  - Senile dementia [Fatal]
  - Underdose [Unknown]

NARRATIVE: CASE EVENT DATE: 20220110
